FAERS Safety Report 7693780 (Version 2)
Quarter: 2013Q3

REPORT INFORMATION
  Report Type: Report from Study
  Country: SE (occurrence: SE)
  Receive Date: 20101206
  Receipt Date: 20130715
  Transmission Date: 20140515
  Serious: Yes (Hospitalization)
  Sender: FDA-Public Use
  Company Number: SE-ROCHE-745798

PATIENT
  Age: 62 Year
  Sex: Female
  Weight: 62 kg

DRUGS (19)
  1. BEVACIZUMAB [Suspect]
     Indication: NON-SMALL CELL LUNG CANCER
     Route: 042
     Dates: start: 20101006, end: 20101006
  2. PEMETREXED [Suspect]
     Indication: NON-SMALL CELL LUNG CANCER
     Route: 042
     Dates: start: 20101006, end: 20101006
  3. CISPLATIN [Suspect]
     Indication: NON-SMALL CELL LUNG CANCER
     Dosage: FREQUENCY: DAY 1 EVERY 21 DAYS.
     Route: 042
     Dates: start: 20101006, end: 20101006
  4. FOLIC ACID [Concomitant]
     Route: 065
  5. VITAMIN B12 [Concomitant]
     Route: 065
  6. DEXAMETHASONE [Concomitant]
     Route: 065
     Dates: start: 20101005, end: 20101007
  7. IMOVANE [Concomitant]
     Route: 065
  8. IMOVANE [Concomitant]
     Route: 065
  9. OXYNORM [Concomitant]
     Route: 065
  10. PROPAVAN [Concomitant]
     Route: 065
  11. DEXOFEN [Concomitant]
     Route: 065
  12. MOLLIPECT [Concomitant]
     Route: 065
  13. OXASCAND [Concomitant]
     Route: 065
  14. SELOKEN [Concomitant]
     Route: 065
  15. TROMBYL [Concomitant]
     Route: 065
  16. TRIMETOPRIM [Concomitant]
     Route: 065
     Dates: start: 20101008, end: 20101018
  17. AMIMOX [Concomitant]
     Route: 065
     Dates: start: 20101015, end: 20101029
  18. PREDNISOLONE [Concomitant]
     Route: 065
     Dates: start: 20100913
  19. CEFOTAXIME [Concomitant]
     Route: 065
     Dates: start: 20100913, end: 20100914

REACTIONS (2)
  - Atrial fibrillation [Recovered/Resolved]
  - Thrombosis [Recovered/Resolved]
